FAERS Safety Report 14248739 (Version 1)
Quarter: 2017Q4

REPORT INFORMATION
  Report Type: Report from Study
  Country: US (occurrence: US)
  Receive Date: 20171204
  Receipt Date: 20171204
  Transmission Date: 20180321
  Serious: Yes (Death)
  Sender: FDA-Public Use
  Company Number: US-PFIZER INC-2016338105

PATIENT
  Age: 74 Year
  Sex: Female
  Weight: 79.4 kg

DRUGS (23)
  1. MYLOTARG [Suspect]
     Active Substance: GEMTUZUMAB OZOGAMICIN
     Indication: CHEMOTHERAPY
     Dosage: 5.6 MG, SINGLE DOSE
     Route: 042
     Dates: start: 20160701, end: 20160701
  2. ACETAMINOPHEN. [Concomitant]
     Active Substance: ACETAMINOPHEN
     Indication: ILL-DEFINED DISORDER
     Dosage: 650 MG, ONCE
     Route: 048
     Dates: start: 20160701
  3. LOPERAMIDE [Concomitant]
     Active Substance: LOPERAMIDE
     Indication: DIARRHOEA
     Dosage: 2 MG, PRN
     Route: 048
     Dates: start: 20160702
  4. MONTELUKAST SODIUM. [Concomitant]
     Active Substance: MONTELUKAST SODIUM
     Indication: HYPERSENSITIVITY
     Dosage: 10 MG, QD
     Route: 048
     Dates: start: 20160627
  5. AMINOCAPROIC ACID. [Concomitant]
     Active Substance: AMINOCAPROIC ACID
     Indication: PROPHYLAXIS
     Dosage: INJECTION, 5 G, ONCE
     Route: 042
     Dates: start: 20160705
  6. DIPHENHYDRAMINE. [Concomitant]
     Active Substance: DIPHENHYDRAMINE
     Indication: ILL-DEFINED DISORDER
     Dosage: 50 MG, ONCE
     Route: 048
     Dates: start: 20160707
  7. FLUTICASONE/SALMETEROL [Concomitant]
     Indication: CHRONIC OBSTRUCTIVE PULMONARY DISEASE
     Dosage: 500/50 INHALER, 1 IU, BID
     Route: 055
     Dates: start: 20160627
  8. ISAVUCONAZONIUM SULFATE [Concomitant]
     Active Substance: ISAVUCONAZONIUM SULFATE
     Indication: INFECTION
     Dosage: 372 MG, QD
     Route: 048
     Dates: start: 20160628
  9. MAGNESIUM AMINO ACID CHELATE [Concomitant]
     Active Substance: MAGNESIUM
     Indication: SUPPLEMENTATION THERAPY
     Dosage: 266 MG, TID
     Route: 048
     Dates: start: 20160627
  10. TACROLIMUS. [Concomitant]
     Active Substance: TACROLIMUS
     Indication: GRAFT VERSUS HOST DISEASE
     Dosage: 0.1 MG, BID
     Route: 048
     Dates: start: 20160627
  11. TIOTROPIUM BROMIDE [Concomitant]
     Active Substance: TIOTROPIUM BROMIDE
     Indication: CHRONIC OBSTRUCTIVE PULMONARY DISEASE
     Dosage: 18 UG, QD
     Route: 055
     Dates: start: 20160628
  12. CHOLECALCIFEROL [Concomitant]
     Active Substance: CHOLECALCIFEROL
     Indication: SUPPLEMENTATION THERAPY
     Dosage: 2000 IU, QD
     Route: 048
     Dates: start: 20160627
  13. LEVOTHYROXINE. [Concomitant]
     Active Substance: LEVOTHYROXINE
     Indication: HYPOTHYROIDISM
     Dosage: 500 MG, QD
     Route: 048
     Dates: start: 20160628
  14. PIPERACILLIN/TAZOBACTAM [Concomitant]
     Active Substance: PIPERACILLIN SODIUM\TAZOBACTAM SODIUM
     Indication: INFECTION
     Dosage: 4.5 G, QID
     Route: 042
     Dates: start: 20160702
  15. VANCOMYCIN [Concomitant]
     Active Substance: VANCOMYCIN
     Indication: INFECTION
     Dosage: INJECTION, 1250 MG, ONCE
     Route: 042
     Dates: start: 20160706
  16. VITAMIN A AND D [Concomitant]
     Active Substance: LANOLIN\PETROLATUM
     Indication: SUPPLEMENTATION THERAPY
     Dosage: 1 IU, TID
     Route: 061
     Dates: start: 20160703
  17. ACYCLOVIR /00587301/ [Concomitant]
     Active Substance: ACYCLOVIR
     Indication: PROPHYLAXIS
     Dosage: 400 MG, BID
     Route: 048
     Dates: start: 20160627
  18. FOLIC ACID. [Concomitant]
     Active Substance: FOLIC ACID
     Indication: ANAEMIA
     Dosage: 1 MG, QD
     Route: 048
     Dates: start: 20160627
  19. URSODIOL. [Concomitant]
     Active Substance: URSODIOL
     Indication: CHOLELITHIASIS
     Dosage: 300 MG, TID
     Route: 048
     Dates: start: 20160627
  20. ALBUTEROL /00139501/ [Concomitant]
     Active Substance: ALBUTEROL
     Indication: PROPHYLAXIS
     Dosage: 3 ML, ONCE
     Route: 055
     Dates: start: 20160706
  21. CARVEDILOL. [Concomitant]
     Active Substance: CARVEDILOL
     Indication: HYPERTENSION
     Dosage: 3.125 MG, QD
     Route: 048
     Dates: start: 20160627
  22. MICAFUNGIN [Concomitant]
     Active Substance: MICAFUNGIN
     Indication: INFECTION
     Dosage: 100 MG, QD
     Route: 042
     Dates: start: 20160706
  23. PANTOPRAZOLE [Concomitant]
     Active Substance: PANTOPRAZOLE
     Indication: GASTROOESOPHAGEAL REFLUX DISEASE
     Dosage: 40 MG, QD
     Route: 048
     Dates: start: 20160627

REACTIONS (1)
  - Cerebrovascular accident [Fatal]

NARRATIVE: CASE EVENT DATE: 20160707
